FAERS Safety Report 16085159 (Version 1)
Quarter: 2019Q1

REPORT INFORMATION
  Report Type: Report from Study
  Country: DE (occurrence: DE)
  Receive Date: 20190318
  Receipt Date: 20190318
  Transmission Date: 20190418
  Serious: Yes (Hospitalization, Other)
  Sender: FDA-Public Use
  Company Number: DE-BAYER-2019-051803

PATIENT
  Age: 82 Year
  Sex: Female
  Weight: 74 kg

DRUGS (1)
  1. ACETYLSALICYLIC ACID [Suspect]
     Active Substance: ASPIRIN
     Indication: ANTICOAGULANT THERAPY
     Dosage: 100 MG
     Route: 048

REACTIONS (1)
  - Haemorrhagic transformation stroke [Recovered/Resolved]

NARRATIVE: CASE EVENT DATE: 20170518
